FAERS Safety Report 23272773 (Version 1)
Quarter: 2023Q4

REPORT INFORMATION
  Report Type: Spontaneous
  Country: US (occurrence: None)
  Receive Date: 20231207
  Receipt Date: 20231207
  Transmission Date: 20240110
  Serious: No
  Sender: FDA-Public Use
  Company Number: None

PATIENT
  Age: 62 Year
  Sex: Female

DRUGS (1)
  1. HUMIRA [Suspect]
     Active Substance: ADALIMUMAB
     Indication: Rheumatoid arthritis
     Dosage: 40 MG Q A  WEEK SUBCUTANEOUS
     Route: 058
     Dates: start: 20220621, end: 20231201

REACTIONS (3)
  - Injection site bruising [None]
  - Injection site mass [None]
  - Therapy interrupted [None]

NARRATIVE: CASE EVENT DATE: 20231130
